FAERS Safety Report 9237329 (Version 1)
Quarter: 2013Q2

REPORT INFORMATION
  Report Type: Spontaneous
  Country: US (occurrence: US)
  Receive Date: 20130417
  Receipt Date: 20130417
  Transmission Date: 20140414
  Serious: Yes (Hospitalization)
  Sender: FDA-Public Use
  Company Number: US-B.I. PHARMACEUTICALS,INC./RIDGEFIELD-2013-BI-09755BP

PATIENT
  Age: 81 Year
  Sex: Female

DRUGS (4)
  1. AGGRENOX [Suspect]
     Indication: CEREBROVASCULAR ACCIDENT PROPHYLAXIS
     Route: 048
     Dates: start: 2011, end: 20130401
  2. THYROID MEDICATION [Concomitant]
     Route: 048
  3. ANTIHYPERTENSIVE MEDICATION [Concomitant]
     Indication: HYPERTENSION
     Route: 048
  4. ANTICHOLESTEROL MEDICATION [Concomitant]
     Route: 048

REACTIONS (1)
  - Coronary artery occlusion [Recovered/Resolved]
